FAERS Safety Report 17216373 (Version 3)
Quarter: 2020Q2

REPORT INFORMATION
  Report Type: Spontaneous
  Country: US (occurrence: US)
  Receive Date: 20191230
  Receipt Date: 20200501
  Transmission Date: 20200713
  Serious: Yes (Other)
  Sender: FDA-Public Use
  Company Number: NVSC2019US044978

PATIENT
  Sex: Male

DRUGS (4)
  1. RITALIN [Suspect]
     Active Substance: METHYLPHENIDATE HYDROCHLORIDE
     Dosage: UNK
     Route: 065
     Dates: start: 1992
  2. RITALIN [Suspect]
     Active Substance: METHYLPHENIDATE HYDROCHLORIDE
     Indication: PRODUCT USED FOR UNKNOWN INDICATION
     Dosage: 10 MG, TID
     Route: 065
     Dates: start: 1990
  3. RITALIN [Suspect]
     Active Substance: METHYLPHENIDATE HYDROCHLORIDE
     Dosage: UNK
     Route: 065
     Dates: start: 2015
  4. RITALIN [Suspect]
     Active Substance: METHYLPHENIDATE HYDROCHLORIDE
     Dosage: UNK, TID
     Route: 065

REACTIONS (12)
  - Peripheral swelling [Unknown]
  - Spontaneous penile erection [Unknown]
  - Somnambulism [Unknown]
  - Seizure [Unknown]
  - Amnesia [Unknown]
  - Behaviour disorder [Unknown]
  - Penile curvature [Unknown]
  - Hallucination [Recovered/Resolved]
  - Arthropod bite [Unknown]
  - Fall [Unknown]
  - Drowning [Unknown]
  - Bipolar disorder [Unknown]
